FAERS Safety Report 13769326 (Version 1)
Quarter: 2017Q3

REPORT INFORMATION
  Report Type: Spontaneous
  Country: PT (occurrence: PT)
  Receive Date: 20170719
  Receipt Date: 20170719
  Transmission Date: 20171127
  Serious: Yes (Hospitalization, Other)
  Sender: FDA-Public Use
  Company Number: PT-GLAXOSMITHKLINE-PT2017GSK109892

PATIENT
  Age: 54 Year
  Sex: Female

DRUGS (2)
  1. DICLOFENAC [Suspect]
     Active Substance: DICLOFENAC
     Indication: BACK PAIN
     Dosage: 75 MG, UNK
  2. ACETYLSALICYL ACID [Suspect]
     Active Substance: ASPIRIN
     Dosage: 150 MG, UNK

REACTIONS (6)
  - Mitral valve incompetence [Unknown]
  - Gastric disorder [Unknown]
  - Ejection fraction [Unknown]
  - Iron deficiency [Unknown]
  - Coronary artery disease [Unknown]
  - Diverticulum intestinal [Unknown]
